FAERS Safety Report 21395432 (Version 1)
Quarter: 2022Q3

REPORT INFORMATION
  Report Type: Report from Study
  Country: US (occurrence: US)
  Receive Date: 20220930
  Receipt Date: 20220930
  Transmission Date: 20221027
  Serious: Yes (Other)
  Sender: FDA-Public Use
  Company Number: US-ABBVIE-4132881

PATIENT
  Sex: Male

DRUGS (2)
  1. VENCLEXTA [Suspect]
     Active Substance: VENETOCLAX
     Indication: Acute myeloid leukaemia
     Route: 048
     Dates: start: 20220809
  2. VIDAZA [Concomitant]
     Active Substance: AZACITIDINE
     Indication: Product used for unknown indication

REACTIONS (6)
  - Prostate cancer [Unknown]
  - Post-traumatic stress disorder [Unknown]
  - Scar [Unknown]
  - Drug ineffective [Unknown]
  - Myelodysplastic syndrome [Unknown]
  - Full blood count abnormal [Unknown]
